FAERS Safety Report 5919378-2 (Version None)
Quarter: 2008Q4

REPORT INFORMATION
  Report Type: 
  Country: None (occurrence: None)
  Receive Date: 20081015
  Receipt Date: 20081010
  Transmission Date: 20090506
  Serious: Yes (Hospitalization)
  Sender: FDA-Public Use
  Company Number: B0538121A

PATIENT
  Age: 69 Year
  Sex: Male

DRUGS (2)
  1. AUGMENTIN '125' [Suspect]
     Dosage: 2G PER DAY
     Route: 048
     Dates: start: 20080901, end: 20080906
  2. DINTOINA [Suspect]
     Indication: PROPHYLAXIS
     Dosage: 300MG PER DAY
     Route: 048
     Dates: start: 20080817, end: 20080907

REACTIONS (6)
  - DRUG HYPERSENSITIVITY [None]
  - EOSINOPHILIA [None]
  - HAEMORRHAGE [None]
  - PYREXIA [None]
  - RASH MORBILLIFORM [None]
  - STEVENS-JOHNSON SYNDROME [None]
